FAERS Safety Report 7443140-5 (Version None)
Quarter: 2011Q2

REPORT INFORMATION
  Report Type: 
  Country: None (occurrence: None)
  Receive Date: 20110428
  Receipt Date: 20110422
  Transmission Date: 20111010
  Serious: Yes (Death, Hospitalization)
  Sender: FDA-Public Use
  Company Number: A0896865A

PATIENT
  Age: 67 Year
  Sex: Male

DRUGS (4)
  1. AVANDIA [Suspect]
     Dosage: 4MG TWICE PER DAY
     Route: 048
     Dates: start: 20000509, end: 20041108
  2. CRESTOR [Concomitant]
  3. TENORETIC [Concomitant]
  4. INSULIN [Concomitant]

REACTIONS (3)
  - CARDIOVASCULAR DISORDER [None]
  - SUDDEN CARDIAC DEATH [None]
  - CEREBROVASCULAR ACCIDENT [None]
